FAERS Safety Report 23120636 (Version 1)
Quarter: 2023Q4

REPORT INFORMATION
  Report Type: Spontaneous
  Country: US (occurrence: None)
  Receive Date: 20231029
  Receipt Date: 20231029
  Transmission Date: 20240110
  Serious: Yes (Other)
  Sender: FDA-Public Use
  Company Number: US-ENDO-CASE-0037097

PATIENT
  Sex: Male

DRUGS (28)
  1. ENDODAN [Suspect]
     Active Substance: ASPIRIN\OXYCODONE HYDROCHLORIDE
  2. NUBAIN [Suspect]
     Active Substance: NALBUPHINE HYDROCHLORIDE
  3. TRAMADOL HYDROCHLORIDE [Suspect]
     Active Substance: TRAMADOL HYDROCHLORIDE
  4. PERCOCET [Suspect]
     Active Substance: ACETAMINOPHEN\OXYCODONE HYDROCHLORIDE
  5. ENDOCET [Suspect]
     Active Substance: ACETAMINOPHEN\OXYCODONE HYDROCHLORIDE
  6. ACETAMINOPHEN\HYDROCODONE BITARTRATE [Suspect]
     Active Substance: ACETAMINOPHEN\HYDROCODONE BITARTRATE
  7. ACETAMINOPHEN\OXYCODONE HYDROCHLORIDE [Suspect]
     Active Substance: ACETAMINOPHEN\OXYCODONE HYDROCHLORIDE
  8. BUPRENORPHINE HYDROCHLORIDE [Suspect]
     Active Substance: BUPRENORPHINE HYDROCHLORIDE
  9. OPANA ER [Suspect]
     Active Substance: OXYMORPHONE HYDROCHLORIDE
  10. FENTANYL CITRATE [Suspect]
     Active Substance: FENTANYL CITRATE
  11. GUAIFENESIN\HYDROCODONE BITARTRATE [Suspect]
     Active Substance: GUAIFENESIN\HYDROCODONE BITARTRATE
  12. PROPOXYPHENE HYDROCHLORIDE [Suspect]
     Active Substance: PROPOXYPHENE HYDROCHLORIDE
  13. CHLORPHENIRAMINE MALEATE\HYDROCODONE BITARTRATE\PSEUDOEPHEDRINE HYDROC [Suspect]
     Active Substance: CHLORPHENIRAMINE MALEATE\HYDROCODONE BITARTRATE\PSEUDOEPHEDRINE HYDROCHLORIDE
  14. MEPERIDINE HYDROCHLORIDE [Suspect]
     Active Substance: MEPERIDINE HYDROCHLORIDE
  15. OXYMORPHONE HYDROCHLORIDE [Suspect]
     Active Substance: OXYMORPHONE HYDROCHLORIDE
  16. PROMETHAZINE HYDROCHLORIDE AND CODEINE PHOSPHATE [Suspect]
     Active Substance: CODEINE PHOSPHATE\PROMETHAZINE HYDROCHLORIDE
  17. GUAIFENESIN\HYDROCODONE BITARTRATE [Suspect]
     Active Substance: GUAIFENESIN\HYDROCODONE BITARTRATE
  18. BELBUCA [Suspect]
     Active Substance: BUPRENORPHINE HYDROCHLORIDE
  19. DEPODUR [Suspect]
     Active Substance: MORPHINE SULFATE
  20. OPANA [Suspect]
     Active Substance: OXYMORPHONE HYDROCHLORIDE
  21. BUTALBITAL, ACETAMINOPHEN AND CAFFEINE WITH CODEINE PHOSPHATE [Suspect]
     Active Substance: ACETAMINOPHEN\BUTALBITAL\CAFFEINE\CODEINE PHOSPHATE
  22. IBUDONE [Suspect]
     Active Substance: HYDROCODONE BITARTRATE\IBUPROFEN
  23. HYDROCODONE BITARTRATE\IBUPROFEN [Suspect]
     Active Substance: HYDROCODONE BITARTRATE\IBUPROFEN
  24. CHERATUSSIN AC [Suspect]
     Active Substance: CODEINE PHOSPHATE\GUAIFENESIN
  25. ACETAMINOPHEN\HYDROCODONE BITARTRATE [Suspect]
     Active Substance: ACETAMINOPHEN\HYDROCODONE BITARTRATE
  26. CODEINE PHOSPHATE\GUAIFENESIN [Suspect]
     Active Substance: CODEINE PHOSPHATE\GUAIFENESIN
  27. HYDROCODONE POLISTIREX AND CHLORPHENIRAMINE POLISTIREX [Suspect]
     Active Substance: CHLORPHENIRAMINE MALEATE\HYDROCODONE BITARTRATE
  28. PHENYLHISTINE DH [Suspect]
     Active Substance: CHLORPHENIRAMINE MALEATE\CODEINE PHOSPHATE\PSEUDOEPHEDRINE HYDROCHLORIDE

REACTIONS (2)
  - Overdose [Unknown]
  - Dependence [Unknown]
